FAERS Safety Report 11611020 (Version 2)
Quarter: 2015Q4

REPORT INFORMATION
  Report Type: Spontaneous
  Country: US (occurrence: US)
  Receive Date: 20151008
  Receipt Date: 20151123
  Transmission Date: 20160304
  Serious: No
  Sender: FDA-Public Use
  Company Number: US-PFIZER INC-2015332631

PATIENT
  Age: 81 Year
  Sex: Female

DRUGS (2)
  1. VFEND [Suspect]
     Active Substance: VORICONAZOLE
     Indication: PSEUDALLESCHERIA INFECTION
     Dosage: 100 MG, 2X/DAY
     Route: 048
  2. REMICADE [Concomitant]
     Active Substance: INFLIXIMAB
     Dosage: UNK

REACTIONS (5)
  - Vomiting [Unknown]
  - Liver function test abnormal [Recovering/Resolving]
  - Drug level decreased [Unknown]
  - Decreased appetite [Unknown]
  - Nausea [Unknown]
